FAERS Safety Report 20373766 (Version 6)
Quarter: 2022Q3

REPORT INFORMATION
  Report Type: Spontaneous
  Country: US (occurrence: US)
  Receive Date: 20220125
  Receipt Date: 20220714
  Transmission Date: 20221027
  Serious: Yes (Other)
  Sender: FDA-Public Use
  Company Number: US-BAYER-2022A009613

PATIENT
  Age: 29 Year
  Sex: Male

DRUGS (9)
  1. KOGENATE FS [Suspect]
     Active Substance: ANTIHEMOPHILIC FACTOR, HUMAN RECOMBINANT
     Dosage: 4875 IU
  2. KOGENATE FS [Suspect]
     Active Substance: ANTIHEMOPHILIC FACTOR, HUMAN RECOMBINANT
     Dosage: 2 DF, FOR THE LEFT ANKLE BLEED TREATMENT
     Dates: start: 20220106
  3. KOGENATE FS [Suspect]
     Active Substance: ANTIHEMOPHILIC FACTOR, HUMAN RECOMBINANT
     Dosage: 2 DF, FOR THE DENTAL PROCEDURE
     Dates: start: 20220117
  4. KOGENATE FS [Suspect]
     Active Substance: ANTIHEMOPHILIC FACTOR, HUMAN RECOMBINANT
     Dosage: 1 DF, FOR THE LEFT ANKLE BLEED TREATMENT
     Dates: start: 20220204, end: 20220204
  5. KOGENATE FS [Suspect]
     Active Substance: ANTIHEMOPHILIC FACTOR, HUMAN RECOMBINANT
     Dosage: 1 DF, FOR THE LEFT ANKLE BLEED TREATMENT
     Dates: start: 20220205, end: 20220205
  6. KOGENATE FS [Suspect]
     Active Substance: ANTIHEMOPHILIC FACTOR, HUMAN RECOMBINANT
     Dosage: 1 DF, FOR THE LEFT ANKLE BLEED TREATMENT
     Dates: start: 20220206, end: 20220206
  7. KOGENATE FS [Suspect]
     Active Substance: ANTIHEMOPHILIC FACTOR, HUMAN RECOMBINANT
     Dosage: 1 DF, FOR THE LEFT ANKLE BLEED TREATMENT
     Dates: start: 20220213, end: 20220213
  8. KOGENATE FS [Suspect]
     Active Substance: ANTIHEMOPHILIC FACTOR, HUMAN RECOMBINANT
     Dosage: 5 DF, FOR THE LEFT ANKLE BLEED TREATMENT
  9. KOGENATE FS [Suspect]
     Active Substance: ANTIHEMOPHILIC FACTOR, HUMAN RECOMBINANT
     Dosage: 2 DF, FOR THE LEFT ANKLE PAIN AND LEFT ANKLE BLEED
     Dates: start: 20220702, end: 20220702

REACTIONS (6)
  - Haemarthrosis [Recovered/Resolved]
  - Dental care [None]
  - Haemarthrosis [Recovered/Resolved]
  - Haemarthrosis [None]
  - Haemarthrosis [Recovered/Resolved]
  - Arthralgia [None]

NARRATIVE: CASE EVENT DATE: 20220101
